FAERS Safety Report 17453413 (Version 1)
Quarter: 2020Q1

REPORT INFORMATION
  Report Type: Spontaneous
  Country: ES (occurrence: ES)
  Receive Date: 20200224
  Receipt Date: 20200224
  Transmission Date: 20200409
  Serious: Yes (Other)
  Sender: FDA-Public Use
  Company Number: ES-REGENERON PHARMACEUTICALS, INC.-2020-20906

PATIENT

DRUGS (2)
  1. EYLEA [Suspect]
     Active Substance: AFLIBERCEPT
     Indication: ASTROCYTOMA
     Dosage: THREE MONTHLY DOSES
     Dates: start: 201111
  2. EYLEA [Suspect]
     Active Substance: AFLIBERCEPT
     Dosage: ONE DOSE
     Dates: start: 2017, end: 2017

REACTIONS (10)
  - Astrocytoma [Unknown]
  - Blindness [Unknown]
  - Product use in unapproved indication [Unknown]
  - Vitritis [Unknown]
  - Astrocytoma malignant [Unknown]
  - Retinal degeneration [Unknown]
  - Tumour haemorrhage [Unknown]
  - Tumour lysis syndrome [Unknown]
  - Retinal deposits [Unknown]
  - Off label use [Unknown]

NARRATIVE: CASE EVENT DATE: 2012
